FAERS Safety Report 10096776 (Version 2)
Quarter: 2014Q2

REPORT INFORMATION
  Report Type: Spontaneous
  Country: US (occurrence: US)
  Receive Date: 20140422
  Receipt Date: 20140512
  Transmission Date: 20141212
  Serious: Yes (Hospitalization, Other)
  Sender: FDA-Public Use
  Company Number: CHPA2014US005515

PATIENT
  Age: 78 Year
  Sex: Male

DRUGS (5)
  1. KERI ADVANCED [Suspect]
     Indication: DRY SKIN
  2. KERI UNKNOWN [Suspect]
     Dosage: UNK
     Dates: start: 1962
  3. KERI MOISTURIZING SHOWER BATH OIL [Suspect]
     Indication: DRY SKIN
  4. ALPHA-KERI MOISTURE RICH OIL [Suspect]
  5. LUBRIDERM [Suspect]

REACTIONS (9)
  - Pruritus [Recovering/Resolving]
  - Rash [Recovering/Resolving]
  - Dry skin [Not Recovered/Not Resolved]
  - Skin exfoliation [Not Recovered/Not Resolved]
  - Erythema [Not Recovered/Not Resolved]
  - Rash macular [Not Recovered/Not Resolved]
  - Pain [Not Recovered/Not Resolved]
  - Skin burning sensation [Not Recovered/Not Resolved]
  - Skin disorder [Not Recovered/Not Resolved]
